FAERS Safety Report 7315999-3 (Version None)
Quarter: 2011Q1

REPORT INFORMATION
  Report Type: 
  Country: None (occurrence: None)
  Receive Date: 20110225
  Receipt Date: 20110215
  Transmission Date: 20110831
  Serious: Yes (Hospitalization, Other)
  Sender: FDA-Public Use
  Company Number: PHHY2011US03699

PATIENT
  Sex: Male
  Weight: 49.433 kg

DRUGS (3)
  1. FOLIC ACID [Concomitant]
     Indication: SICKLE CELL ANAEMIA
     Dosage: 1 MG, BID
     Route: 048
     Dates: start: 20071017
  2. ALBUTEROL [Concomitant]
     Indication: ASTHMA
     Dosage: UNK
     Dates: start: 19990222
  3. EXJADE [Suspect]
     Indication: SICKLE CELL ANAEMIA
     Dosage: 1750 MG, DAILY
     Route: 048
     Dates: start: 20100126

REACTIONS (1)
  - CHOLECYSTITIS [None]
